FAERS Safety Report 8536267-8 (Version None)
Quarter: 2012Q3

REPORT INFORMATION
  Report Type: 
  Country: None (occurrence: None)
  Receive Date: 20120725
  Receipt Date: 20120716
  Transmission Date: 20120928
  Serious: Yes (Death, Other)
  Sender: FDA-Public Use
  Company Number: GB-SANOFI-AVENTIS-2011SA057386

PATIENT
  Age: 62 Year
  Sex: Male
  Weight: 59 kg

DRUGS (13)
  1. ENOXAPARIN SODIUM [Suspect]
     Indication: ACUTE CORONARY SYNDROME
     Dosage: 2500 IU ON 30-AUG-2012 FOR PERCUTANEOUS CORONARY INTERVENTION
     Route: 058
     Dates: start: 20110826, end: 20110830
  2. ASPIRIN [Suspect]
     Indication: ACUTE CORONARY SYNDROME
     Route: 048
     Dates: start: 20110826, end: 20110826
  3. PRASUGREL [Suspect]
     Indication: PERCUTANEOUS CORONARY INTERVENTION
     Dosage: LOADING DOSE
     Route: 048
     Dates: start: 20110830, end: 20110830
  4. BIVALIRUDIN [Suspect]
     Indication: PERCUTANEOUS CORONARY INTERVENTION
     Route: 042
     Dates: start: 20110830, end: 20110830
  5. BIVALIRUDIN [Suspect]
     Route: 042
     Dates: start: 20110830, end: 20110830
  6. ALBUTEROL SULATE [Concomitant]
     Route: 055
     Dates: end: 20110831
  7. CLOPIDOGREL [Suspect]
     Indication: ACUTE CORONARY SYNDROME
     Route: 048
     Dates: start: 20110826, end: 20110826
  8. ASPIRIN [Suspect]
     Route: 048
     Dates: start: 20110826, end: 20110830
  9. BIVALIRUDIN [Suspect]
     Route: 042
     Dates: start: 20110830, end: 20110830
  10. BIVALIRUDIN [Suspect]
     Route: 042
     Dates: start: 20110830, end: 20110830
  11. PRASUGREL [Suspect]
     Dosage: LOADING DOSE
     Route: 048
     Dates: start: 20110830, end: 20110830
  12. CLOPIDOGREL [Suspect]
     Route: 048
     Dates: start: 20110826, end: 20110830
  13. BECLOMETHASONE DIPROPIONATE [Concomitant]
     Route: 055
     Dates: end: 20110831

REACTIONS (6)
  - PUPIL FIXED [None]
  - LOSS OF CONSCIOUSNESS [None]
  - AGITATION [None]
  - HAEMORRHAGE INTRACRANIAL [None]
  - ACUTE MYOCARDIAL INFARCTION [None]
  - COMA SCALE ABNORMAL [None]
